FAERS Safety Report 24129632 (Version 2)
Quarter: 2024Q3

REPORT INFORMATION
  Report Type: Report from Study
  Country: JP (occurrence: JP)
  Receive Date: 20240724
  Receipt Date: 20240820
  Transmission Date: 20241017
  Serious: Yes (Other)
  Sender: TAKEDA
  Company Number: JP-TAKEDA-2024TJP010948

PATIENT
  Age: 33 Year
  Sex: Female
  Weight: 50 kg

DRUGS (21)
  1. VONICOG ALFA [Suspect]
     Active Substance: VONICOG ALFA
     Indication: Haemostasis
     Dosage: 2600 INTERNATIONAL UNIT
     Route: 065
     Dates: start: 20230518
  2. VONICOG ALFA [Suspect]
     Active Substance: VONICOG ALFA
     Dosage: 2600 INTERNATIONAL UNIT, SINGLE
     Route: 042
     Dates: start: 20231017, end: 20231017
  3. VONICOG ALFA [Suspect]
     Active Substance: VONICOG ALFA
     Dosage: 2600 INTERNATIONAL UNIT
     Route: 065
     Dates: start: 20240115
  4. VONICOG ALFA [Suspect]
     Active Substance: VONICOG ALFA
     Dosage: 1300 INTERNATIONAL UNIT
     Route: 065
     Dates: start: 20240116
  5. VONICOG ALFA [Suspect]
     Active Substance: VONICOG ALFA
     Dosage: 1300 INTERNATIONAL UNIT
     Route: 065
     Dates: start: 20240117
  6. CEFCAPENE PIVOXIL HYDROCHLORIDE [Concomitant]
     Active Substance: CEFCAPENE PIVOXIL HYDROCHLORIDE
     Dosage: UNK
     Route: 065
  7. LUTORAL [Concomitant]
     Active Substance: CHLORMADINONE ACETATE
     Dosage: UNK
     Route: 065
  8. UTROGESTAN [Concomitant]
     Active Substance: PROGESTERONE
     Indication: Pregnancy
     Dosage: 200 MILLIGRAM, TID
     Route: 067
     Dates: start: 20231118, end: 20240111
  9. ETHINYL ESTRADIOL\NORGESTREL [Concomitant]
     Active Substance: ETHINYL ESTRADIOL\NORGESTREL
     Dosage: UNK
     Route: 065
  10. MEDROXYPROGESTERONE [Concomitant]
     Active Substance: MEDROXYPROGESTERONE
     Dosage: UNK
     Route: 065
  11. FOLLITROPIN ALFA [Concomitant]
     Active Substance: FOLLITROPIN ALFA
     Dosage: UNK
     Route: 065
  12. BUSERELIN [Concomitant]
     Active Substance: BUSERELIN
     Dosage: UNK
     Route: 065
  13. CEFZON [Concomitant]
     Dosage: UNK
     Route: 065
  14. LUTEUM [Concomitant]
     Dosage: UNK
     Route: 065
  15. OVIDREL [Concomitant]
     Active Substance: CHORIOGONADOTROPIN ALFA
     Dosage: UNK
     Route: 065
  16. ACETATE MAINTENANCE SOLUTION 3G HK [Concomitant]
     Dosage: UNK
     Route: 065
  17. XYLOCAINE [Concomitant]
     Active Substance: LIDOCAINE HYDROCHLORIDE\LIDOCAINE HYDROCHLORIDE ANHYDROUS
     Dosage: UNK
     Route: 065
  18. CALCIUM CHLORIDE\POTASSIUM CHLORIDE\SODIUM ACETATE\SODIUM CHLORIDE [Concomitant]
     Active Substance: CALCIUM CHLORIDE\POTASSIUM CHLORIDE\SODIUM ACETATE\SODIUM CHLORIDE
     Dosage: UNK
     Route: 065
  19. REMIFENTANIL [Concomitant]
     Active Substance: REMIFENTANIL
     Route: 065
  20. FENTANYL [Concomitant]
     Active Substance: FENTANYL\FENTANYL CITRATE
     Dosage: UNK
     Route: 065
  21. CHORIONIC GONADOTROPHIN [Concomitant]
     Active Substance: CHORIOGONADOTROPIN ALFA
     Dosage: UNK
     Route: 065

REACTIONS (2)
  - Abortion missed [Recovered/Resolved]
  - Pregnancy [Unknown]

NARRATIVE: CASE EVENT DATE: 20240111
